FAERS Safety Report 13823354 (Version 3)
Quarter: 2017Q3

REPORT INFORMATION
  Report Type: Spontaneous
  Country: NO (occurrence: NO)
  Receive Date: 20170802
  Receipt Date: 20170824
  Transmission Date: 20171127
  Serious: Yes (Hospitalization, Other)
  Sender: FDA-Public Use
  Company Number: NO-ORION CORPORATION ORION PHARMA-17_00002513

PATIENT
  Age: 40 Year
  Sex: Male

DRUGS (9)
  1. METHOTREXATE (TRADE NAME UNKNOWN) [Suspect]
     Active Substance: METHOTREXATE
     Indication: PSORIASIS
     Route: 065
     Dates: start: 199802
  2. REMICADE [Suspect]
     Active Substance: INFLIXIMAB
     Route: 042
     Dates: start: 2003, end: 2005
  3. SANDIMMUN [Concomitant]
     Active Substance: CYCLOSPORINE
     Indication: PSORIASIS
     Dosage: FOR A SHORT PERIOD OF TIME
     Route: 065
     Dates: start: 2001
  4. STELARA [Suspect]
     Active Substance: USTEKINUMAB
     Indication: PSORIASIS
     Route: 058
     Dates: start: 2009, end: 2010
  5. REMICADE [Suspect]
     Active Substance: INFLIXIMAB
     Indication: PSORIASIS
     Route: 042
     Dates: start: 1999
  6. REMICADE [Suspect]
     Active Substance: INFLIXIMAB
     Route: 042
     Dates: start: 200903, end: 200904
  7. NEOTIGASON [Concomitant]
     Active Substance: ACITRETIN
     Indication: PSORIASIS
     Route: 065
     Dates: start: 199902, end: 199909
  8. STELARA [Suspect]
     Active Substance: USTEKINUMAB
     Route: 058
     Dates: start: 2009
  9. ENBREL [Suspect]
     Active Substance: ETANERCEPT
     Indication: PSORIASIS
     Route: 065
     Dates: start: 2005, end: 2009

REACTIONS (13)
  - Psoriasis [Unknown]
  - Ileus [Unknown]
  - Bursitis [Unknown]
  - Spondylitis [Unknown]
  - Rheumatoid arthritis [Unknown]
  - Asthma [Unknown]
  - Fibromyalgia [Unknown]
  - Sacroiliitis [Unknown]
  - Osteonecrosis [Not Recovered/Not Resolved]
  - Migraine [Unknown]
  - Volvulus [Unknown]
  - Drug effect decreased [Unknown]
  - Sepsis [Unknown]

NARRATIVE: CASE EVENT DATE: 201602
